FAERS Safety Report 8249168-X (Version None)
Quarter: 2012Q2

REPORT INFORMATION
  Report Type: 
  Country: None (occurrence: None)
  Receive Date: 20120402
  Receipt Date: 20120328
  Transmission Date: 20120825
  Serious: No
  Sender: FDA-Public Use
  Company Number: US-PFIZER INC-2012029520

PATIENT

DRUGS (1)
  1. VENLAFAXINE HCL [Suspect]
     Dosage: UNK

REACTIONS (1)
  - EYE DISORDER [None]
